FAERS Safety Report 10168234 (Version 2)
Quarter: 2014Q2

REPORT INFORMATION
  Report Type: Spontaneous
  Country: US (occurrence: US)
  Receive Date: 20140512
  Receipt Date: 20140523
  Transmission Date: 20141212
  Serious: Yes (Other)
  Sender: FDA-Public Use
  Company Number: US-009507513-1405USA002145

PATIENT
  Age: 62 Year
  Sex: Male

DRUGS (7)
  1. COZAAR [Suspect]
     Indication: HYPERTENSION
     Dosage: 50 MG, QD
     Route: 048
     Dates: start: 2011, end: 20140401
  2. SECTRAL [Suspect]
  3. SIMVASTATIN TABLETS, USP [Concomitant]
  4. NEXIUM [Concomitant]
  5. ASPIRIN [Concomitant]
  6. VITAMINS (UNSPECIFIED) [Concomitant]
  7. IRON (UNSPECIFIED) [Concomitant]

REACTIONS (9)
  - Myocardial infarction [Recovered/Resolved]
  - Ventricular tachycardia [Recovered/Resolved]
  - Bundle branch block left [Recovered/Resolved]
  - Heart rate increased [Recovered/Resolved]
  - Myocardial ischaemia [Recovered/Resolved]
  - Palpitations [Recovered/Resolved]
  - Blood pressure decreased [Recovered/Resolved]
  - Dizziness [Recovered/Resolved]
  - Electrocardiogram U-wave abnormality [Recovered/Resolved]
